FAERS Safety Report 8474046-0 (Version None)
Quarter: 2012Q2

REPORT INFORMATION
  Report Type: 
  Country: None (occurrence: None)
  Receive Date: 20120628
  Receipt Date: 20120427
  Transmission Date: 20120825
  Serious: Yes (Death)
  Sender: FDA-Public Use
  Company Number: US-MYLANLABS-2012S1008898

PATIENT
  Age: 33 Year
  Sex: Male

DRUGS (8)
  1. GEODON [Concomitant]
     Route: 048
  2. LAMOTRIGINE [Concomitant]
     Route: 048
  3. TRAZODONE HCL [Concomitant]
     Route: 048
  4. DEPAKOTE [Concomitant]
     Route: 048
  5. ACYCLOVIR [Concomitant]
     Route: 048
  6. CLOZAPINE [Suspect]
     Route: 048
     Dates: start: 20120223
  7. CLONAZEPAM [Concomitant]
     Route: 048
  8. LITHIUM CARBONATE [Concomitant]
     Route: 048

REACTIONS (1)
  - DEATH [None]
